FAERS Safety Report 4811935-X (Version None)
Quarter: 2005Q4

REPORT INFORMATION
  Report Type: 
  Country: None (occurrence: None)
  Receive Date: 20051028
  Receipt Date: 20041019
  Transmission Date: 20060501
  Serious: No
  Sender: FDA-Public Use
  Company Number: US-GLAXOSMITHKLINE-A0530370A

PATIENT
  Age: 67 Year
  Sex: Female

DRUGS (8)
  1. ADVAIR DISKUS 100/50 [Suspect]
     Indication: ASTHMA
     Route: 055
  2. LIPITOR [Concomitant]
  3. PAXIL CR [Concomitant]
  4. ZETIA [Concomitant]
  5. ALBUTEROL [Concomitant]
  6. NITRO SPRAY [Concomitant]
  7. DIAVAN [Concomitant]
  8. ASPIRIN [Concomitant]

REACTIONS (3)
  - CHEST PAIN [None]
  - NECK PAIN [None]
  - ORAL PAIN [None]
